FAERS Safety Report 13036174 (Version 1)
Quarter: 2016Q4

REPORT INFORMATION
  Report Type: Spontaneous
  Country: US (occurrence: US)
  Receive Date: 20161216
  Receipt Date: 20161216
  Transmission Date: 20170207
  Serious: No
  Sender: FDA-Public Use
  Company Number: US-PERRIGO-16US019233

PATIENT
  Sex: Female
  Weight: 59.86 kg

DRUGS (3)
  1. BACITRACIN. [Suspect]
     Active Substance: BACITRACIN
     Dosage: SMALL AMOUNT, SINGLE
     Route: 047
     Dates: start: 20160810, end: 20160810
  2. VITAMINS NOS [Concomitant]
     Active Substance: VITAMINS
     Indication: SUPPLEMENTATION THERAPY
     Dosage: UNK
     Route: 048
  3. BACITRACIN. [Suspect]
     Active Substance: BACITRACIN
     Indication: EYE INFECTION
     Dosage: SMALL AMOUNT, SINGLE
     Route: 047
     Dates: start: 20160804, end: 20160804

REACTIONS (5)
  - Vision blurred [Recovered/Resolved]
  - Eye pruritus [Recovered/Resolved]
  - Eyelid oedema [Recovered/Resolved]
  - Hypersensitivity [Recovering/Resolving]
  - Ocular hyperaemia [Recovering/Resolving]

NARRATIVE: CASE EVENT DATE: 20160805
